FAERS Safety Report 6814391-5 (Version None)
Quarter: 2010Q3

REPORT INFORMATION
  Report Type: 
  Country: None (occurrence: None)
  Receive Date: 20100702
  Receipt Date: 20100609
  Transmission Date: 20110219
  Serious: Yes (Hospitalization)
  Sender: FDA-Public Use
  Company Number: AU-SOLVAY-00210004106

PATIENT
  Age: 59 Year
  Sex: Male
  Weight: 105 kg

DRUGS (12)
  1. DARBEPOETIN [Concomitant]
     Indication: PRODUCT USED FOR UNKNOWN INDICATION
     Dosage: DOSE: 40 MICROGRAMS ONCE WEEKLY
     Route: 058
  2. MIXTARD 30/70 INSULIN [Concomitant]
     Indication: PRODUCT USED FOR UNKNOWN INDICATION
     Dosage: DOSE: 14 UNITS EACH MORNING; 8 UNITS EACH NIGHT
     Route: 058
  3. WARFARIN SODIUM [Concomitant]
     Indication: PRODUCT USED FOR UNKNOWN INDICATION
     Dosage: DAILY DOSE: 6.5 MILLIGRAM(S)
     Route: 048
  4. ASPIRIN [Concomitant]
     Indication: PRODUCT USED FOR UNKNOWN INDICATION
     Dosage: DAILY DOSE: 100 MILLIGRAM(S)
     Route: 048
  5. FRUSEMIDE [Concomitant]
     Indication: PRODUCT USED FOR UNKNOWN INDICATION
     Dosage: DAILY DOSE: 160 MILLIGRAM(S)
     Route: 065
  6. CARVEDILOL [Concomitant]
     Indication: PRODUCT USED FOR UNKNOWN INDICATION
     Dosage: DOSE: 3.125 MG EACH MORNING; 6.25 MG EACH NIGHT
     Route: 065
  7. SPIRONOLACTONE [Suspect]
     Indication: PRODUCT USED FOR UNKNOWN INDICATION
     Dosage: DAILY DOSE: 12.5 MILLIGRAM(S)
     Route: 065
  8. SPIRONOLACTONE [Suspect]
     Dosage: DAILY DOSE: 12.5 MILLIGRAM(S)
     Route: 065
  9. DIGOXIN [Suspect]
     Indication: PRODUCT USED FOR UNKNOWN INDICATION
     Dosage: DAILY DOSE: 125 MICROGRAM(S) EACH MORNING
     Route: 065
  10. DIGOXIN [Suspect]
     Dosage: DOSE: 62.5 MICROGRAMS ON ALTERNATE DAYS
     Route: 065
  11. PERINDOPRIL [Suspect]
     Indication: PRODUCT USED FOR UNKNOWN INDICATION
     Dosage: DAILY DOSE: 5 MILLIGRAM(S)
     Route: 048
  12. PERINDOPRIL [Suspect]
     Dosage: DAILY DOSE: 5 MILLIGRAM(S)
     Route: 048

REACTIONS (3)
  - HYPERKALAEMIA [None]
  - RENAL FAILURE [None]
  - THERAPEUTIC AGENT TOXICITY [None]
